FAERS Safety Report 8933354 (Version 2)
Quarter: 2013Q2

REPORT INFORMATION
  Report Type: Spontaneous
  Country: GB (occurrence: GB)
  Receive Date: 20121129
  Receipt Date: 20130521
  Transmission Date: 20140414
  Serious: Yes (Other)
  Sender: FDA-Public Use
  Company Number: GB-MERCK-1211GBR010495

PATIENT
  Sex: Male

DRUGS (1)
  1. PROSCAR 5 MG FILM-COATED TABLETS [Suspect]
     Dosage: 5 MG, UNK
     Route: 048

REACTIONS (4)
  - Blood urine present [Unknown]
  - Dysuria [Unknown]
  - Pollakiuria [Not Recovered/Not Resolved]
  - Urinary tract inflammation [Unknown]
